FAERS Safety Report 8947227 (Version 1)
Quarter: 2012Q4

REPORT INFORMATION
  Report Type: 
  Country: US (occurrence: US)
  Receive Date: 20121205
  Receipt Date: 20121205
  Transmission Date: 20130627
  Serious: Yes (Other)
  Sender: FDA-Public Use
  Company Number: US-SANOFI-AVENTIS-2012SA088658

PATIENT
  Sex: Female

DRUGS (2)
  1. LANTUS SOLOSTAR [Suspect]
     Dosage: Dose:50 unit(s)
     Route: 058
  2. SOLOSTAR [Suspect]

REACTIONS (2)
  - Cardiac failure congestive [Not Recovered/Not Resolved]
  - Blood glucose increased [Recovered/Resolved]
